FAERS Safety Report 22110062 (Version 1)
Quarter: 2023Q1

REPORT INFORMATION
  Report Type: Spontaneous
  Country: CN (occurrence: None)
  Receive Date: 20230317
  Receipt Date: 20230317
  Transmission Date: 20230418
  Serious: Yes (Death)
  Sender: FDA-Public Use
  Company Number: 2023A063193

PATIENT
  Age: 88 Year
  Sex: Female
  Weight: 50 kg

DRUGS (1)
  1. IMFINZI [Suspect]
     Active Substance: DURVALUMAB
     Indication: Non-small cell lung cancer stage III
     Dosage: 240 MG/CYCLE. USED SPECIFICATION: 120MG/2.4MLX2 RECEIVED 6 CYCLES
     Route: 042
     Dates: start: 20191212, end: 20200407

REACTIONS (1)
  - COVID-19 pneumonia [Fatal]
